FAERS Safety Report 7709349-8 (Version None)
Quarter: 2011Q3

REPORT INFORMATION
  Report Type: 
  Country: None (occurrence: None)
  Receive Date: 20110825
  Receipt Date: 20110819
  Transmission Date: 20111222
  Serious: Yes (Other)
  Sender: FDA-Public Use
  Company Number: CN-PFIZER INC-2011191159

PATIENT
  Age: 68 Year
  Sex: Male

DRUGS (1)
  1. ZYVOX [Suspect]
     Indication: INFECTION

REACTIONS (2)
  - HAEMATEMESIS [None]
  - PLATELET COUNT DECREASED [None]
